FAERS Safety Report 5878297-0 (Version None)
Quarter: 2008Q3

REPORT INFORMATION
  Report Type: 
  Country: None (occurrence: None)
  Receive Date: 20080911
  Receipt Date: 20080901
  Transmission Date: 20090109
  Serious: Yes (Death)
  Sender: FDA-Public Use
  Company Number: CN-PFIZER INC-2008072806

PATIENT
  Age: 83 Year
  Sex: Male

DRUGS (1)
  1. ZYVOX [Suspect]
     Indication: PNEUMONIA
     Route: 042
     Dates: start: 20080806, end: 20080811

REACTIONS (2)
  - DISEASE PROGRESSION [None]
  - LUNG NEOPLASM MALIGNANT [None]
